FAERS Safety Report 7088681-8 (Version None)
Quarter: 2010Q4

REPORT INFORMATION
  Report Type: 
  Country: None (occurrence: None)
  Receive Date: 20101108
  Receipt Date: 20101102
  Transmission Date: 20110411
  Serious: No
  Sender: FDA-Public Use
  Company Number: US-BAYER-201038592NA

PATIENT

DRUGS (4)
  1. LEUKINE [Suspect]
     Indication: PRODUCT USED FOR UNKNOWN INDICATION
     Dates: start: 20100601
  2. LEUKINE [Suspect]
     Dates: start: 20100601
  3. LEUKINE [Suspect]
     Dates: start: 20100601
  4. LEUKINE [Suspect]
     Dates: start: 20100601

REACTIONS (4)
  - DYSPNOEA [None]
  - INJECTION SITE REACTION [None]
  - RASH MACULAR [None]
  - URTICARIA [None]
